FAERS Safety Report 7466963-5 (Version None)
Quarter: 2011Q2

REPORT INFORMATION
  Report Type: 
  Country: None (occurrence: None)
  Receive Date: 20110509
  Receipt Date: 20101001
  Transmission Date: 20111010
  Serious: No
  Sender: FDA-Public Use
  Company Number: US-ALEXION-A201001261

PATIENT
  Age: 64 Year
  Sex: Female
  Weight: 77.098 kg

DRUGS (3)
  1. SOLIRIS [Suspect]
     Dosage: 900 MG, Q2W
     Route: 042
     Dates: start: 20100830
  2. SOLIRIS [Suspect]
     Indication: PAROXYSMAL NOCTURNAL HAEMOGLOBINURIA
     Dosage: 600 MG, QW
     Route: 042
     Dates: start: 20100804, end: 20100801
  3. ASPIRIN [Suspect]
     Dosage: 81 MG, QD

REACTIONS (1)
  - MUSCLE SPASMS [None]
